FAERS Safety Report 24251768 (Version 1)
Quarter: 2024Q3

REPORT INFORMATION
  Report Type: Spontaneous
  Country: US (occurrence: US)
  Receive Date: 20240827
  Receipt Date: 20240827
  Transmission Date: 20241017
  Serious: Yes (Other)
  Sender: NOVARTIS
  Company Number: US-002147023-NVSC2024US170097

PATIENT
  Age: 59 Year
  Sex: Male
  Weight: 190 kg

DRUGS (1)
  1. ENTRESTO [Suspect]
     Active Substance: SACUBITRIL\VALSARTAN
     Indication: Cardiac failure
     Dosage: 24.26 MG, BID
     Route: 048
     Dates: start: 202308

REACTIONS (2)
  - Thrombosis [Not Recovered/Not Resolved]
  - Trigger points [Not Recovered/Not Resolved]

NARRATIVE: CASE EVENT DATE: 20240805
